FAERS Safety Report 22942135 (Version 2)
Quarter: 2023Q4

REPORT INFORMATION
  Report Type: Spontaneous
  Country: US (occurrence: None)
  Receive Date: 20230914
  Receipt Date: 20231009
  Transmission Date: 20240110
  Serious: Yes (Death)
  Sender: FDA-Public Use
  Company Number: US-ROCHE-3421611

PATIENT
  Age: 16 Year
  Sex: Male

DRUGS (2)
  1. NUTROPIN AQ [Suspect]
     Active Substance: SOMATROPIN
     Indication: Hypopituitarism
     Dosage: NUSPIN 10 MG PER 2ML ;ONGOING: NO
     Route: 058
     Dates: start: 202305
  2. NUTROPIN AQ [Suspect]
     Active Substance: SOMATROPIN

REACTIONS (1)
  - Cardiac failure [Fatal]

NARRATIVE: CASE EVENT DATE: 20230908
